FAERS Safety Report 9750016 (Version 1)
Quarter: 2013Q4

REPORT INFORMATION
  Report Type: Spontaneous
  Country: DE (occurrence: DE)
  Receive Date: 20131212
  Receipt Date: 20131212
  Transmission Date: 20140711
  Serious: No
  Sender: FDA-Public Use
  Company Number: DE-GILEAD-DE-CVT-090511

PATIENT
  Sex: Female

DRUGS (6)
  1. RANEXA [Suspect]
     Indication: ANGINA PECTORIS
     Route: 048
     Dates: start: 20090609, end: 20090820
  2. PLAVIX [Concomitant]
  3. GODAMED                            /00002701/ [Concomitant]
  4. BISOPROLOL                         /00802601/ [Concomitant]
  5. RAMIPRIL /00885601/ [Concomitant]
  6. SIMVASTATIN [Concomitant]

REACTIONS (1)
  - Hallucination [Unknown]
